FAERS Safety Report 7443872-9 (Version None)
Quarter: 2011Q2

REPORT INFORMATION
  Report Type: 
  Country: None (occurrence: None)
  Receive Date: 20110428
  Receipt Date: 20101228
  Transmission Date: 20111010
  Serious: Yes (Hospitalization)
  Sender: FDA-Public Use
  Company Number: US-BAYER-201034332NA

PATIENT
  Age: 24 Year
  Sex: Female
  Weight: 72.562 kg

DRUGS (4)
  1. YASMIN [Suspect]
     Indication: PRODUCT USED FOR UNKNOWN INDICATION
     Dosage: UNK UNK, UNK
     Route: 048
     Dates: start: 20060601, end: 20060728
  2. LEVAQUIN [Concomitant]
     Indication: PNEUMONIA
  3. YAZ [Suspect]
     Indication: PRODUCT USED FOR UNKNOWN INDICATION
     Dosage: UNK UNK, UNK
     Route: 048
     Dates: start: 20060601, end: 20060728
  4. LEVAQUIN [Concomitant]
     Indication: BRONCHITIS
     Dosage: UNK
     Dates: start: 20060701

REACTIONS (1)
  - PULMONARY EMBOLISM [None]
